FAERS Safety Report 12190469 (Version 1)
Quarter: 2016Q1

REPORT INFORMATION
  Report Type: Report from Study
  Country: US (occurrence: US)
  Receive Date: 20160318
  Receipt Date: 20160318
  Transmission Date: 20160526
  Serious: Yes (Disabling, Other)
  Sender: FDA-Public Use
  Company Number: US-AMGEN-USASL2016031198

PATIENT
  Age: 60 Year
  Sex: Female

DRUGS (1)
  1. ENBREL [Suspect]
     Active Substance: ETANERCEPT
     Indication: PRODUCT USED FOR UNKNOWN INDICATION
     Dosage: UNK
     Route: 065

REACTIONS (12)
  - Depression [Unknown]
  - Latent tuberculosis [Unknown]
  - Fatigue [Unknown]
  - Nasopharyngitis [Unknown]
  - Arthralgia [Unknown]
  - Joint swelling [Unknown]
  - Spinal osteoarthritis [Unknown]
  - Nerve compression [Unknown]
  - Abasia [Unknown]
  - Pain in extremity [Unknown]
  - Asthenia [Unknown]
  - Drug dose omission [Unknown]
